FAERS Safety Report 23662173 (Version 1)
Quarter: 2024Q1

REPORT INFORMATION
  Report Type: Spontaneous
  Country: NL (occurrence: NL)
  Receive Date: 20240322
  Receipt Date: 20240322
  Transmission Date: 20240410
  Serious: Yes (Other)
  Sender: FDA-Public Use
  Company Number: NL-CELLTRION HEALTHCARE HUNGARY KFT-2023NL025583

PATIENT

DRUGS (15)
  1. CYCLOPHOSPHAMIDE [Interacting]
     Active Substance: CYCLOPHOSPHAMIDE
     Dosage: UNK
     Route: 064
  2. CYCLOPHOSPHAMIDE [Interacting]
     Active Substance: CYCLOPHOSPHAMIDE
     Indication: Non-Hodgkin^s lymphoma
     Dosage: UNK
     Route: 065
  3. DOXORUBICIN [Interacting]
     Active Substance: DOXORUBICIN
     Dosage: UNK
     Route: 064
  4. DOXORUBICIN [Interacting]
     Active Substance: DOXORUBICIN
     Indication: Non-Hodgkin^s lymphoma
     Dosage: UNK
     Route: 065
  5. INFLIXIMAB [Interacting]
     Active Substance: INFLIXIMAB
     Indication: Product used for unknown indication
     Dosage: 0.5 MCG/ML AT 3 MONTHS OF AGE
     Route: 065
  6. PNEUMOCOCCAL VACCINE POLYVALENT [Interacting]
     Active Substance: PNEUMOCOCCAL VACCINE POLYVALENT
     Indication: Prophylaxis
     Dosage: UNK
     Route: 065
  7. PNEUMOCOCCAL VACCINE POLYVALENT [Interacting]
     Active Substance: PNEUMOCOCCAL VACCINE POLYVALENT
     Dosage: UNK
     Route: 065
  8. PNEUMOCOCCAL VACCINE POLYVALENT [Interacting]
     Active Substance: PNEUMOCOCCAL VACCINE POLYVALENT
     Dosage: UNK
     Route: 065
  9. PREDNISONE [Interacting]
     Active Substance: PREDNISONE
     Dosage: UNK
     Route: 064
  10. PREDNISONE [Interacting]
     Active Substance: PREDNISONE
     Indication: Non-Hodgkin^s lymphoma
     Dosage: UNK
     Route: 065
  11. RITUXIMAB [Interacting]
     Active Substance: RITUXIMAB
     Indication: Non-Hodgkin^s lymphoma
     Dosage: UNK
     Route: 064
  12. RITUXIMAB [Interacting]
     Active Substance: RITUXIMAB
     Dosage: UNK
     Route: 065
  13. REMICADE [Interacting]
     Active Substance: INFLIXIMAB
     Indication: Crohn^s disease
     Dosage: 0.5 MCG/ML
     Route: 064
  14. VINCRISTINE [Interacting]
     Active Substance: VINCRISTINE
     Indication: Non-Hodgkin^s lymphoma
     Dosage: UNK
     Route: 064
  15. VINCRISTINE [Interacting]
     Active Substance: VINCRISTINE
     Dosage: UNK
     Route: 065

REACTIONS (5)
  - Premature baby [Unknown]
  - Hypogammaglobulinaemia [Unknown]
  - Foetal exposure during pregnancy [Unknown]
  - Vaccination failure [Unknown]
  - Vaccine interaction [Unknown]
